FAERS Safety Report 22143232 (Version 3)
Quarter: 2023Q2

REPORT INFORMATION
  Report Type: Report from Study
  Country: BG (occurrence: BG)
  Receive Date: 20230327
  Receipt Date: 20230519
  Transmission Date: 20230721
  Serious: Yes (Hospitalization, Other)
  Sender: FDA-Public Use
  Company Number: BG-AKCEA THERAPEUTICS, INC.-2022IS003726

PATIENT

DRUGS (14)
  1. TEGSEDI [Suspect]
     Active Substance: INOTERSEN SODIUM
     Indication: Hereditary neuropathic amyloidosis
     Dosage: 284 MILLIGRAM, QW
     Route: 065
     Dates: start: 202204, end: 202207
  2. TEGSEDI [Suspect]
     Active Substance: INOTERSEN SODIUM
     Dosage: 284 MILLIGRAM, QOW
     Route: 065
     Dates: start: 202207
  3. ELIQUIS [Concomitant]
     Active Substance: APIXABAN
     Indication: Product used for unknown indication
     Dosage: 5 MILLIGRAM, PER DAY
     Route: 065
  4. FUROSEMIDE [Concomitant]
     Active Substance: FUROSEMIDE
     Indication: Product used for unknown indication
     Dosage: 20 MILLIGRAM, 2 TABLETS MORNING AND 2 TABLETS NOON
     Route: 065
  5. FUROSEMIDE [Concomitant]
     Active Substance: FUROSEMIDE
     Dosage: 40 PER DAY
  6. SPIRONOLACTONE [Concomitant]
     Active Substance: SPIRONOLACTONE
     Indication: Cardiac failure
     Dosage: 25 MILLIGRAM, 2 IN THE MORNING
     Route: 048
     Dates: start: 202209
  7. SPIRONOLACTONE [Concomitant]
     Active Substance: SPIRONOLACTONE
     Dosage: 25 MILLIGRAM, PER DAY
     Route: 065
  8. BENALGIN [CAFFEINE;METAMIZOLE SODIUM;THIAMINE HYDROCHLORIDE] [Concomitant]
     Indication: Product used for unknown indication
     Dosage: 250 MILLIGRAM, QD IN THE EVENING
     Route: 065
  9. VITAMIN A [Concomitant]
     Active Substance: VITAMIN A
     Indication: Supplementation therapy
     Dosage: 2500 INTERNATIONAL UNIT, QD
     Route: 048
     Dates: start: 202303
  10. VITAMIN A [Concomitant]
     Active Substance: VITAMIN A
     Dosage: 2500 INTERNATIONAL UNIT, QD
     Route: 048
     Dates: start: 202204
  11. CEFTRIAXONE [Concomitant]
     Active Substance: CEFTRIAXONE
     Indication: Product used for unknown indication
     Dosage: 1 G, DAILY
     Route: 042
  12. TORSEMIDE [Concomitant]
     Active Substance: TORSEMIDE
     Indication: Cardiac failure
     Dosage: 50MG, TWICE DAILY
     Route: 048
     Dates: start: 202303
  13. EDOXABAN [Concomitant]
     Active Substance: EDOXABAN
     Indication: Cardiomyopathy
     Dosage: 30 MILLIGRAM, QD
     Route: 048
     Dates: start: 202209
  14. GENTIAN VIOLET [Concomitant]
     Active Substance: GENTIAN VIOLET
     Indication: Wound treatment
     Route: 065

REACTIONS (13)
  - Ascites [Unknown]
  - Bacteriuria [Unknown]
  - Oedema peripheral [Unknown]
  - Pigmentation disorder [Unknown]
  - Skin ulcer [Unknown]
  - Product use issue [Not Recovered/Not Resolved]
  - White blood cell count decreased [Not Recovered/Not Resolved]
  - Red blood cell count decreased [Not Recovered/Not Resolved]
  - Cystitis [Unknown]
  - Haematocrit increased [Not Recovered/Not Resolved]
  - Red cell distribution width increased [Not Recovered/Not Resolved]
  - Platelet count decreased [Not Recovered/Not Resolved]
  - Epistaxis [Recovered/Resolved]

NARRATIVE: CASE EVENT DATE: 20220411
